FAERS Safety Report 6461132-X (Version None)
Quarter: 2009Q4

REPORT INFORMATION
  Report Type: 
  Country: None (occurrence: None)
  Receive Date: 20091130
  Receipt Date: 20091125
  Transmission Date: 20100525
  Serious: Yes (Death)
  Sender: FDA-Public Use
  Company Number: JP-BAYER-200912059BYL

PATIENT
  Age: 67 Year
  Sex: Male
  Weight: 51 kg

DRUGS (12)
  1. NEXAVAR [Suspect]
     Indication: HEPATIC NEOPLASM MALIGNANT
     Dosage: TOTAL DAILY DOSE: 800 MG  UNIT DOSE: 200 MG
     Route: 048
     Dates: start: 20090604, end: 20090617
  2. URSO 250 [Concomitant]
     Dosage: TOTAL DAILY DOSE: 600 MG
     Route: 048
     Dates: end: 20090617
  3. MAGNESIUM OXIDE [Concomitant]
     Indication: CONSTIPATION
     Dosage: TOTAL DAILY DOSE: 2.25 G
     Route: 048
     Dates: end: 20090617
  4. LIVACT [Concomitant]
     Dosage: TOTAL DAILY DOSE: 2 DF
     Route: 048
     Dates: end: 20090617
  5. GASTER D [Concomitant]
     Indication: PROPHYLAXIS AGAINST GASTROINTESTINAL ULCER
     Dosage: TOTAL DAILY DOSE: 40 MG
     Route: 048
     Dates: end: 20090617
  6. GLYCYRON [Concomitant]
     Dosage: TOTAL DAILY DOSE: 6 DF
     Route: 048
     Dates: end: 20090617
  7. BIOFERMIN [Concomitant]
     Dosage: TOTAL DAILY DOSE: 3 G
     Route: 048
     Dates: end: 20090617
  8. LENDORMIN [Concomitant]
     Indication: INSOMNIA
     Dosage: TOTAL DAILY DOSE: 0.25 MG
     Route: 048
     Dates: end: 20090617
  9. LOXONIN [Concomitant]
     Indication: METASTATIC PAIN
     Dosage: TOTAL DAILY DOSE: 180 MG
     Route: 048
     Dates: end: 20090617
  10. URIEF NOS [Concomitant]
     Indication: BENIGN PROSTATIC HYPERPLASIA
     Dosage: TOTAL DAILY DOSE: 8 MG
     Route: 048
     Dates: end: 20090617
  11. OXYCONTIN [Concomitant]
     Indication: METASTATIC PAIN
     Dosage: TOTAL DAILY DOSE: 20 MG
     Route: 048
     Dates: end: 20090617
  12. OXINORM [Concomitant]
     Indication: METASTATIC PAIN
     Dosage: UNIT DOSE: 0.5 %
     Route: 048
     Dates: end: 20090617

REACTIONS (7)
  - BLOOD AMYLASE INCREASED [None]
  - ERYTHEMA MULTIFORME [None]
  - HEPATIC FUNCTION ABNORMAL [None]
  - HYPERAMMONAEMIA [None]
  - HYPOMAGNESAEMIA [None]
  - HYPOPHOSPHATAEMIA [None]
  - METABOLIC ENCEPHALOPATHY [None]
